FAERS Safety Report 7744761-2 (Version None)
Quarter: 2011Q3

REPORT INFORMATION
  Report Type: 
  Country: None (occurrence: None)
  Receive Date: 20110912
  Receipt Date: 20110912
  Transmission Date: 20111222
  Serious: Yes (Hospitalization)
  Sender: FDA-Public Use
  Company Number: None

PATIENT
  Age: 71 Year
  Sex: Male
  Weight: 90 kg

DRUGS (2)
  1. NIASPAN [Concomitant]
     Indication: HYPERLIPIDAEMIA
     Dosage: 2000MG
     Route: 048
     Dates: start: 20110311, end: 20110901
  2. GLYBURIDE [Suspect]
     Indication: DIABETES MELLITUS
     Dosage: 5MG
     Route: 048
     Dates: start: 20110513, end: 20110901

REACTIONS (7)
  - PRESYNCOPE [None]
  - DEHYDRATION [None]
  - CHROMATURIA [None]
  - JAUNDICE CHOLESTATIC [None]
  - HYPOTENSION [None]
  - ASTHENIA [None]
  - FLATULENCE [None]
